FAERS Safety Report 5049705-2 (Version None)
Quarter: 2006Q3

REPORT INFORMATION
  Report Type: 
  Country: None (occurrence: None)
  Receive Date: 20060707
  Receipt Date: 20060427
  Transmission Date: 20061208
  Serious: Yes (Death, Other)
  Sender: FDA-Public Use
  Company Number: 2006S1000082

PATIENT
  Age: 61 Year
  Sex: Female
  Weight: 63.2 kg

DRUGS (48)
  1. INOMAX [Suspect]
     Indication: VENTRICULAR ASSIST DEVICE INSERTION
     Dosage: 40 PPM; CONT; INH
     Route: 055
     Dates: start: 20060421, end: 20060422
  2. ASPIRIN [Concomitant]
  3. DIPYRIDAMOLE [Concomitant]
  4. NIZATIDINE [Concomitant]
  5. ZOSYN [Concomitant]
  6. ZOCOR [Concomitant]
  7. SYNTHROID [Concomitant]
  8. LEXAPRO [Concomitant]
  9. WARFARIN SODIUM [Concomitant]
  10. ANGIOMAX [Concomitant]
  11. DOPAMINE [Concomitant]
  12. MILRINONE [Concomitant]
  13. CEFUROXIME [Concomitant]
  14. FLUCONAZOLE [Concomitant]
  15. LASIX [Concomitant]
  16. VANCOMYCIN [Concomitant]
  17. PROPOFOL [Concomitant]
  18. FENTANYL TRANSDERMAL SYSTEM [Concomitant]
  19. TIOTROPRIUM [Concomitant]
  20. ALBUTEROL SPIROS [Concomitant]
  21. NYSTATIN [Concomitant]
  22. POTASSIUM CHLORIDE [Concomitant]
  23. MAGNESIUM SULFATE [Concomitant]
  24. OXYCODONE HCL [Concomitant]
  25. HEXTEND [Concomitant]
  26. ETOMIDATE [Concomitant]
  27. SUCCINYCHOLINE CHLORIDE [Concomitant]
  28. POTASSIUM CHLORIDE [Concomitant]
  29. MULTIVITAMIN [Concomitant]
  30. FOLIC ACID [Concomitant]
  31. FERROUS SULFATE TAB [Concomitant]
  32. PROCRIT [Concomitant]
  33. PLASMANATE [Concomitant]
  34. DESITIN [Concomitant]
  35. CALCIUM CHLORIDE [Concomitant]
  36. ........... [Concomitant]
  37. ZOSYN [Concomitant]
  38. COUMADIN [Concomitant]
  39. SODIUM CHLORIDE [Concomitant]
  40. OMEPRAZOLE [Concomitant]
  41. BIVALIRUDIN [Concomitant]
  42. TESTOSTERONE [Concomitant]
  43. SYNTHROID [Concomitant]
  44. INSULIN [Concomitant]
  45. NYSTATIN [Concomitant]
  46. ............. [Concomitant]
  47. ................... [Concomitant]
  48. DIPYRIDAMOLE [Concomitant]

REACTIONS (15)
  - CONVULSION [None]
  - FEELING COLD [None]
  - FLUID OVERLOAD [None]
  - HAEMORRHAGE INTRACRANIAL [None]
  - HYPOTENSION [None]
  - LOSS OF CONSCIOUSNESS [None]
  - OCCULT BLOOD POSITIVE [None]
  - OXYGEN SATURATION DECREASED [None]
  - PALLOR [None]
  - PLEURAL EFFUSION [None]
  - PNEUMONIA [None]
  - PULMONARY OEDEMA [None]
  - RESPIRATORY DISTRESS [None]
  - TRACHEAL HAEMORRHAGE [None]
  - URINE OUTPUT DECREASED [None]
